FAERS Safety Report 5289410-0 (Version None)
Quarter: 2007Q2

REPORT INFORMATION
  Report Type: 
  Country: None (occurrence: None)
  Receive Date: 20070406
  Receipt Date: 20070328
  Transmission Date: 20071010
  Serious: Yes (Other)
  Sender: FDA-Public Use
  Company Number: PHBS2007GT05377

PATIENT

DRUGS (1)
  1. CATAFLAM [Suspect]
     Indication: PYREXIA
     Dates: start: 20050101

REACTIONS (3)
  - BLOOD CREATININE INCREASED [None]
  - BLOOD UREA INCREASED [None]
  - URINE ABNORMALITY [None]
